FAERS Safety Report 25896831 (Version 1)
Quarter: 2025Q4

REPORT INFORMATION
  Report Type: Spontaneous
  Country: TR (occurrence: TR)
  Receive Date: 20251008
  Receipt Date: 20251008
  Transmission Date: 20260118
  Serious: Yes (Death, Other)
  Sender: LEADING PHARMA
  Company Number: TR-LEADINGPHARMA-TR-2025LEALIT00201

PATIENT
  Age: 58 Year
  Sex: Female

DRUGS (2)
  1. HYDROXYUREA [Suspect]
     Active Substance: HYDROXYUREA
     Indication: Myelofibrosis
     Route: 065
  2. ASPIRIN [Suspect]
     Active Substance: ASPIRIN
     Indication: Thrombosis prophylaxis
     Dosage: LOW DOSE
     Route: 065

REACTIONS (3)
  - Renal haemorrhage [Fatal]
  - Vasculitis [Fatal]
  - Product use in unapproved indication [Unknown]
